FAERS Safety Report 17034359 (Version 7)
Quarter: 2025Q1

REPORT INFORMATION
  Report Type: Report from Study
  Country: US (occurrence: US)
  Receive Date: 20191115
  Receipt Date: 20250116
  Transmission Date: 20250409
  Serious: Yes (Other)
  Sender: ABBVIE
  Company Number: US-ABBVIE-19P-163-2998420-00

PATIENT
  Age: 18 Year
  Sex: Female
  Weight: 58 kg

DRUGS (55)
  1. HUMIRA [Suspect]
     Active Substance: ADALIMUMAB
     Indication: Crohn^s disease
     Route: 058
     Dates: start: 20130508, end: 20180417
  2. HUMIRA [Suspect]
     Active Substance: ADALIMUMAB
     Route: 058
     Dates: start: 20190420, end: 20190420
  3. HUMIRA [Suspect]
     Active Substance: ADALIMUMAB
     Route: 058
     Dates: start: 201904, end: 201906
  4. HUMIRA [Suspect]
     Active Substance: ADALIMUMAB
     Route: 058
     Dates: start: 20180425, end: 20180705
  5. HUMIRA [Suspect]
     Active Substance: ADALIMUMAB
     Route: 058
     Dates: start: 20180910, end: 201903
  6. HUMIRA [Suspect]
     Active Substance: ADALIMUMAB
     Route: 058
     Dates: start: 201903, end: 201904
  7. MERCAPTOPURINE [Suspect]
     Active Substance: MERCAPTOPURINE
     Indication: Crohn^s disease
     Route: 048
     Dates: start: 20170623, end: 20190709
  8. MERCAPTOPURINE [Suspect]
     Active Substance: MERCAPTOPURINE
     Indication: Crohn^s disease
     Route: 048
     Dates: start: 20200713, end: 20221121
  9. HYDROCORTISONE [Concomitant]
     Active Substance: HYDROCORTISONE
     Indication: Crohn^s disease
     Route: 061
     Dates: start: 20130220
  10. ACETAMINOPHEN-CAFFEINE [Concomitant]
     Indication: Headache
     Route: 048
     Dates: start: 20150527, end: 2019
  11. ACETAMINOPHEN-CAFFEINE [Concomitant]
     Indication: Headache
     Route: 048
     Dates: start: 2019, end: 2019
  12. ALBUTEROL [Concomitant]
     Active Substance: ALBUTEROL
     Indication: Wheezing
     Route: 055
     Dates: start: 20170809
  13. CETIRIZINE [Concomitant]
     Active Substance: CETIRIZINE HYDROCHLORIDE
     Indication: Hypersensitivity
     Route: 048
     Dates: start: 20170807
  14. FLUDROCORTISONE [Concomitant]
     Active Substance: FLUDROCORTISONE
     Indication: Syncope
     Route: 048
     Dates: start: 20171107
  15. FLUOCINONIDE [Concomitant]
     Active Substance: FLUOCINONIDE
     Indication: Eczema
     Route: 061
     Dates: start: 20170907, end: 20200511
  16. LACTOBACILLUS ACIDOPHILUS [Concomitant]
     Active Substance: LACTOBACILLUS ACIDOPHILUS
     Indication: Irritable bowel syndrome
     Route: 048
     Dates: start: 20130320, end: 2019
  17. IRON\VITAMINS [Concomitant]
     Active Substance: IRON\VITAMINS
     Indication: Vitamin supplementation
     Route: 048
     Dates: start: 20170615, end: 2019
  18. ONDANSETRON [Concomitant]
     Active Substance: ONDANSETRON
     Indication: Nausea
     Route: 048
     Dates: start: 20150530, end: 20200512
  19. PROPRANOLOL [Concomitant]
     Active Substance: PROPRANOLOL HYDROCHLORIDE
     Indication: Headache
     Route: 048
     Dates: start: 20170602
  20. RANITIDINE [Concomitant]
     Active Substance: RANITIDINE
     Indication: Dyspepsia
     Route: 048
     Dates: start: 20160219, end: 20181121
  21. SERTRALINE [Concomitant]
     Active Substance: SERTRALINE HYDROCHLORIDE
     Indication: Anxiety
     Route: 048
     Dates: start: 20161209, end: 2018
  22. SERTRALINE [Concomitant]
     Active Substance: SERTRALINE HYDROCHLORIDE
     Indication: Anxiety
     Route: 048
     Dates: start: 2018, end: 2019
  23. SERTRALINE [Concomitant]
     Active Substance: SERTRALINE HYDROCHLORIDE
     Indication: Anxiety
     Route: 048
     Dates: start: 2019, end: 2019
  24. SERTRALINE [Concomitant]
     Active Substance: SERTRALINE HYDROCHLORIDE
     Indication: Anxiety
     Route: 048
     Dates: start: 2019, end: 2019
  25. SERTRALINE [Concomitant]
     Active Substance: SERTRALINE HYDROCHLORIDE
     Indication: Anxiety
     Route: 048
     Dates: start: 2019
  26. TRIAMCINOLONE [Concomitant]
     Active Substance: TRIAMCINOLONE
     Indication: Dermatitis
     Route: 061
     Dates: start: 20160403
  27. ACETAMINOPHEN [Concomitant]
     Active Substance: ACETAMINOPHEN
     Indication: Pyrexia
     Route: 048
     Dates: start: 20180423, end: 20180426
  28. ACETAMINOPHEN [Concomitant]
     Active Substance: ACETAMINOPHEN
     Indication: Pyrexia
     Route: 048
     Dates: start: 20180713, end: 20180713
  29. ACETAMINOPHEN [Concomitant]
     Active Substance: ACETAMINOPHEN
     Indication: Pyrexia
     Route: 042
     Dates: start: 20180712, end: 20180712
  30. ACETAMINOPHEN [Concomitant]
     Active Substance: ACETAMINOPHEN
     Indication: Pyrexia
     Route: 048
     Dates: start: 20190418
  31. OXYCODONE [Concomitant]
     Active Substance: OXYCODONE
     Indication: Pain
     Route: 048
     Dates: start: 20180715
  32. NYSTATIN [Concomitant]
     Active Substance: NYSTATIN
     Indication: Stoma site irritation
     Route: 061
     Dates: start: 2019
  33. LEVONORGESTREL-ETHINYL ESTRADIOL [Concomitant]
     Indication: Dysmenorrhoea
     Route: 048
     Dates: start: 2018
  34. CHOLECALCIFEROL [Concomitant]
     Active Substance: CHOLECALCIFEROL
     Indication: Crohn^s disease
     Route: 048
     Dates: start: 20110401, end: 20120705
  35. CHOLECALCIFEROL [Concomitant]
     Active Substance: CHOLECALCIFEROL
     Indication: Crohn^s disease
     Route: 048
     Dates: start: 20121212, end: 20140916
  36. CHOLECALCIFEROL [Concomitant]
     Active Substance: CHOLECALCIFEROL
     Indication: Crohn^s disease
     Route: 048
     Dates: start: 20191106
  37. MUPIROCIN [Concomitant]
     Active Substance: MUPIROCIN
     Indication: Impetigo
     Route: 061
     Dates: start: 2018
  38. BUSPIRONE [Concomitant]
     Active Substance: BUSPIRONE HYDROCHLORIDE
     Indication: Anxiety
     Route: 048
     Dates: start: 20190419
  39. USTEKINUMAB [Concomitant]
     Active Substance: USTEKINUMAB
     Indication: Crohn^s disease
     Route: 042
     Dates: start: 20190618, end: 20190618
  40. USTEKINUMAB [Concomitant]
     Active Substance: USTEKINUMAB
     Indication: Crohn^s disease
     Route: 042
     Dates: start: 2019
  41. TACROLIMUS [Concomitant]
     Active Substance: TACROLIMUS
     Indication: Fistula
     Route: 061
     Dates: start: 2019
  42. CLOBETASOL PROPIONATE [Concomitant]
     Active Substance: CLOBETASOL PROPIONATE
     Indication: Dermatitis contact
     Dosage: APPLY SPARINGLY TO AFFECTED AREAS ON THE EARS
     Route: 061
     Dates: start: 2019
  43. FERRIC CARBOXYMALTOSE [Concomitant]
     Active Substance: FERRIC CARBOXYMALTOSE
     Indication: Iron deficiency anaemia
     Route: 042
     Dates: start: 20190513, end: 20190513
  44. SODIUM CHLORIDE [Concomitant]
     Active Substance: SODIUM CHLORIDE
     Indication: Fluid replacement
     Route: 042
     Dates: start: 20191217, end: 20191217
  45. LIDOCAINE [Concomitant]
     Active Substance: LIDOCAINE
     Indication: Product used for unknown indication
     Route: 050
     Dates: start: 20191217, end: 20191218
  46. LACTATED RINGERS SOLUTION [Concomitant]
     Active Substance: CALCIUM CHLORIDE\POTASSIUM CHLORIDE\SODIUM CHLORIDE\SODIUM LACTATE
     Indication: Fluid replacement
     Route: 042
     Dates: start: 20191218, end: 20191218
  47. METHYLPREDNISOLONE [Concomitant]
     Active Substance: METHYLPREDNISOLONE
     Indication: Inflammation
     Route: 042
     Dates: start: 20191218, end: 20191220
  48. SUCRALFATE [Concomitant]
     Active Substance: SUCRALFATE
     Indication: Oesophageal ulcer
     Route: 048
     Dates: start: 20191219, end: 20191223
  49. CALCIUM CARBONATE [Concomitant]
     Active Substance: CALCIUM CARBONATE
     Indication: Dyspepsia
     Route: 048
     Dates: start: 20191220, end: 20191223
  50. ACETAMINOPHEN [Concomitant]
     Active Substance: ACETAMINOPHEN
     Indication: Pain
     Route: 048
     Dates: start: 20191221, end: 20191223
  51. OMEPRAZOLE [Concomitant]
     Active Substance: OMEPRAZOLE
     Indication: Gastritis
     Route: 048
     Dates: start: 20191221, end: 20191223
  52. PREDNISONE [Concomitant]
     Active Substance: PREDNISONE
     Indication: Crohn^s disease
     Dosage: 2011 END DATE
     Route: 048
     Dates: start: 20111027
  53. PREDNISONE [Concomitant]
     Active Substance: PREDNISONE
     Indication: Crohn^s disease
     Dosage: END DATE 2013
     Route: 048
     Dates: start: 20130220
  54. PREDNISONE [Concomitant]
     Active Substance: PREDNISONE
     Indication: Crohn^s disease
     Route: 048
     Dates: start: 20150424, end: 20150518
  55. PREDNISONE [Concomitant]
     Active Substance: PREDNISONE
     Indication: Crohn^s disease
     Route: 048
     Dates: start: 20191221

REACTIONS (1)
  - Hepatotoxicity [Recovered/Resolved]

NARRATIVE: CASE EVENT DATE: 20190523
